FAERS Safety Report 12977641 (Version 2)
Quarter: 2016Q4

REPORT INFORMATION
  Report Type: Report from Study
  Country: DK (occurrence: DK)
  Receive Date: 20161128
  Receipt Date: 20161230
  Transmission Date: 20170207
  Serious: Yes (Death)
  Sender: FDA-Public Use
  Company Number: DK-ROCHE-1855701

PATIENT
  Sex: Female

DRUGS (1)
  1. CAPECITABINE. [Suspect]
     Active Substance: CAPECITABINE
     Indication: BREAST CANCER METASTATIC
     Dosage: 2000 MG/M2 DIVIDED IN TWO DAILY DOSES FOR 14 DAYS FOLLOWED BY 1 WEEK OFF
     Route: 048

REACTIONS (1)
  - Cardiac arrest [Fatal]
